FAERS Safety Report 19938431 (Version 2)
Quarter: 2021Q4

REPORT INFORMATION
  Report Type: Spontaneous
  Country: US (occurrence: US)
  Receive Date: 20211011
  Receipt Date: 20211012
  Transmission Date: 20220303
  Serious: Yes (Other)
  Sender: FDA-Public Use
  Company Number: US-SA-SAC20211008000292

PATIENT
  Age: 35 Year
  Sex: Female

DRUGS (2)
  1. DUPIXENT [Suspect]
     Active Substance: DUPILUMAB
     Indication: Asthma
     Dosage: 300 MG; QOW
     Route: 058
     Dates: start: 20190926
  2. DUPIXENT [Suspect]
     Active Substance: DUPILUMAB
     Dosage: 300 MG; QOW
     Route: 058
     Dates: start: 20210924

REACTIONS (4)
  - Pneumonia [Not Recovered/Not Resolved]
  - Tooth extraction [Not Recovered/Not Resolved]
  - Product storage error [Unknown]
  - Product use issue [Unknown]
